FAERS Safety Report 10784400 (Version 3)
Quarter: 2015Q1

REPORT INFORMATION
  Report Type: Spontaneous
  Country: US (occurrence: US)
  Receive Date: 20150211
  Receipt Date: 20150224
  Transmission Date: 20150721
  Serious: Yes (Hospitalization, Other)
  Sender: FDA-Public Use
  Company Number: US-MERCK-1502USA003432

PATIENT
  Age: 64 Year
  Sex: Female

DRUGS (1)
  1. INTRON A [Suspect]
     Active Substance: INTERFERON ALFA-2B
     Dosage: UNK
     Dates: start: 201408

REACTIONS (4)
  - Seizure [Unknown]
  - Meniscus injury [Unknown]
  - Ligament rupture [Unknown]
  - Skeletal injury [Unknown]

NARRATIVE: CASE EVENT DATE: 20140906
